FAERS Safety Report 9460710 (Version 1)
Quarter: 2013Q3

REPORT INFORMATION
  Report Type: Spontaneous
  Country: GB (occurrence: None)
  Receive Date: 20130813
  Receipt Date: 20130813
  Transmission Date: 20140515
  Serious: Yes (Hospitalization)
  Sender: FDA-Public Use
  Company Number: GER/UKI/13/0033914

PATIENT
  Age: 88 Year
  Sex: Male
  Weight: 107.2 kg

DRUGS (15)
  1. SERTRALINE (SERTRALINE) [Suspect]
     Indication: DYSTHYMIC DISORDER
     Route: 048
     Dates: start: 2009
  2. ASPIRIN CARDIO (ACETYLSALICYLIC ACID) [Suspect]
     Route: 048
     Dates: start: 20130106
  3. NEXIUM (ESOMEPRAOZLE MAGNESIUM) [Suspect]
     Indication: PRODUCT USED FOR UNKNOWN INDICATION
     Route: 048
     Dates: end: 20130313
  4. SINTROM (ACENOCOUMAROL) [Suspect]
     Indication: PULMONARY EMBOLISM
     Route: 048
     Dates: start: 20130109
  5. ATACAND (CANDESARTAN CILEXETIL) [Concomitant]
  6. DAFLAGAN (PARACETAMOL) [Concomitant]
  7. DANCOR (NICORANDIL) [Concomitant]
  8. EUTHYROX (LEVOTHYROXINE SODIUM)(TABLET)(LEVOTHYROXINE SODIUM) [Concomitant]
  9. FLUANXOL (FLUPENTIXOL DIHYDROCHLORIDE) [Concomitant]
  10. GLUCOPHAGE ( METFORMIN HYDROCHLORIDE) [Concomitant]
  11. IMOVANE (ZOPICLONE) [Concomitant]
  12. LAXOBERON (SODIUM PICOSULFATE) [Concomitant]
  13. REDOXON (ASCORBIC ACID) [Concomitant]
  14. TORASEMIDE (TORASEMIDE) [Concomitant]
  15. VITAMIN B1 (THIAMINE HYDROCHLORIDE) [Concomitant]

REACTIONS (5)
  - Petechiae [None]
  - Tongue haematoma [None]
  - Purpura [None]
  - Drug interaction [None]
  - Infection [None]
